FAERS Safety Report 5616509-9 (Version None)
Quarter: 2008Q1

REPORT INFORMATION
  Report Type: 
  Country: None (occurrence: None)
  Receive Date: 20080207
  Receipt Date: 20080201
  Transmission Date: 20080703
  Serious: Yes (Hospitalization)
  Sender: FDA-Public Use
  Company Number: US-BRISTOL-MYERS SQUIBB COMPANY-14061774

PATIENT
  Sex: Male

DRUGS (1)
  1. IXEMPRA [Suspect]
     Route: 042

REACTIONS (1)
  - BACK PAIN [None]
